FAERS Safety Report 24882403 (Version 2)
Quarter: 2025Q2

REPORT INFORMATION
  Report Type: Other
  Country: US (occurrence: US)
  Receive Date: 20250124
  Receipt Date: 20250627
  Transmission Date: 20250717
  Serious: Yes (Other)
  Sender: TRAVERE THERAPEUTICS
  Company Number: US-TRAVERE-2025TVT00006

PATIENT
  Age: 20 Year
  Sex: Female

DRUGS (1)
  1. FILSPARI [Suspect]
     Active Substance: SPARSENTAN
     Indication: Nephritic syndrome
     Route: 048

REACTIONS (7)
  - Nephropathy [Unknown]
  - Product use in unapproved indication [Unknown]
  - Oedema peripheral [Recovering/Resolving]
  - Face oedema [Recovering/Resolving]
  - Localised oedema [Recovering/Resolving]
  - Fatigue [None]
  - Condition aggravated [Unknown]
